FAERS Safety Report 8819387 (Version 1)
Quarter: 2012Q4

REPORT INFORMATION
  Report Type: Spontaneous
  Country: US (occurrence: None)
  Receive Date: 20121003
  Receipt Date: 20121003
  Transmission Date: 20130627
  Serious: Yes (Other)
  Sender: FDA-Public Use
  Company Number: FK201202809

PATIENT
  Age: 81 Year
  Sex: Female

DRUGS (3)
  1. BUPIVACAINE [Suspect]
     Indication: POSTOPERATIVE ANALGESIA
     Route: 008
  2. HYDROMORPHONE [Suspect]
     Indication: POSTOPERATIVE ANALGESIA
     Route: 008
  3. LIDOCAINE 1% (LIDOCAINE) [Concomitant]

REACTIONS (2)
  - Embolic stroke [None]
  - Cerebral artery occlusion [None]
